FAERS Safety Report 5311015-3 (Version None)
Quarter: 2007Q2

REPORT INFORMATION
  Report Type: 
  Country: None (occurrence: None)
  Receive Date: 20070430
  Receipt Date: 20070418
  Transmission Date: 20071010
  Serious: Yes (Hospitalization)
  Sender: FDA-Public Use
  Company Number: US-JNJFOC-20070404377

PATIENT
  Age: 64 Year
  Sex: Female

DRUGS (4)
  1. LEVAQUIN [Suspect]
     Indication: BRONCHITIS
     Route: 048
  2. LEXAPRO [Interacting]
     Indication: ANXIETY
     Route: 048
  3. NEXIUM [Concomitant]
     Route: 065
  4. DIOVAN [Concomitant]
     Route: 065

REACTIONS (4)
  - DIARRHOEA [None]
  - DRUG INTERACTION [None]
  - NAUSEA [None]
  - PRESYNCOPE [None]
